FAERS Safety Report 6987616-3 (Version None)
Quarter: 2010Q3

REPORT INFORMATION
  Report Type: 
  Country: None (occurrence: None)
  Receive Date: 20100916
  Receipt Date: 20100908
  Transmission Date: 20110219
  Serious: Yes (Hospitalization)
  Sender: FDA-Public Use
  Company Number: BR-WYE-H17400210

PATIENT
  Sex: Female

DRUGS (4)
  1. EFFEXOR XR [Suspect]
     Route: 048
     Dates: start: 20050906
  2. EFFEXOR XR [Suspect]
     Route: 048
  3. EFFEXOR XR [Suspect]
     Route: 048
  4. CARDIZEM [Concomitant]
     Dosage: UNKNOWN

REACTIONS (3)
  - FALL [None]
  - HIP FRACTURE [None]
  - PNEUMONIA [None]
